FAERS Safety Report 6178120-3 (Version None)
Quarter: 2009Q2

REPORT INFORMATION
  Report Type: 
  Country: None (occurrence: None)
  Receive Date: 20090504
  Receipt Date: 20090430
  Transmission Date: 20091009
  Serious: Yes (Death, Other)
  Sender: FDA-Public Use
  Company Number: PHHY2009NZ16515

PATIENT
  Sex: Male

DRUGS (1)
  1. CLOZARIL [Suspect]
     Indication: SCHIZOPHRENIA
     Dosage: UNK
     Route: 048
     Dates: start: 19980108

REACTIONS (4)
  - ACTIVITIES OF DAILY LIVING IMPAIRED [None]
  - BLOOD TEST ABNORMAL [None]
  - DEATH [None]
  - INFECTION [None]
